FAERS Safety Report 10305525 (Version 1)
Quarter: 2014Q3

REPORT INFORMATION
  Report Type: Spontaneous
  Country: IT (occurrence: IT)
  Receive Date: 20140715
  Receipt Date: 20140715
  Transmission Date: 20150326
  Serious: Yes (Hospitalization)
  Sender: FDA-Public Use
  Company Number: PHHY2014IT085262

PATIENT
  Age: 67 Year
  Sex: Female

DRUGS (4)
  1. SIVASTIN [Concomitant]
     Active Substance: SIMVASTATIN
     Route: 048
  2. EUTIROX [Concomitant]
     Active Substance: LEVOTHYROXINE SODIUM
     Route: 048
  3. IGROTON [Concomitant]
     Route: 048
  4. AMOXICILLIN. [Suspect]
     Active Substance: AMOXICILLIN
     Indication: BRONCHOPNEUMONIA
     Dosage: 2 DF, QD
     Route: 048
     Dates: start: 20140126, end: 20140128

REACTIONS (3)
  - Swelling face [Unknown]
  - Urticaria [Unknown]
  - Paraesthesia oral [Unknown]

NARRATIVE: CASE EVENT DATE: 20140128
